FAERS Safety Report 6973501-X (Version None)
Quarter: 2010Q3

REPORT INFORMATION
  Report Type: 
  Country: None (occurrence: None)
  Receive Date: 20100909
  Receipt Date: 20100903
  Transmission Date: 20110219
  Serious: Yes (Life-Threatening, Hospitalization)
  Sender: FDA-Public Use
  Company Number: JP-BRISTOL-MYERS SQUIBB COMPANY-14687305

PATIENT
  Age: 39 Year
  Sex: Female
  Weight: 54 kg

DRUGS (12)
  1. SPRYCEL [Suspect]
     Indication: CHRONIC MYELOID LEUKAEMIA
     Dosage: STARTED-27FEB09-25MAR09;RESTARTED-26MAR09-10JUN09
     Route: 048
     Dates: start: 20090227, end: 20090610
  2. ENDOXAN [Suspect]
     Indication: CHRONIC MYELOID LEUKAEMIA
     Route: 042
     Dates: start: 20090703, end: 20090704
  3. ENTECAVIR [Concomitant]
     Dosage: ENTECAVIR HYDRATE;FORM TABS
     Route: 048
  4. IMATINIB MESYLATE [Concomitant]
     Indication: CHRONIC MYELOID LEUKAEMIA
     Dosage: FORM TABS
     Route: 048
     Dates: start: 20090210, end: 20090226
  5. VINCRISTINE [Concomitant]
     Indication: CHRONIC MYELOID LEUKAEMIA
     Dates: start: 20090210, end: 20090225
  6. PREDNISOLONE [Concomitant]
     Indication: CHRONIC MYELOID LEUKAEMIA
     Dosage: FORM TABS
     Route: 048
     Dates: start: 20090210, end: 20090316
  7. LANSOPRAZOLE [Concomitant]
     Dosage: FORM TABS
     Route: 048
  8. SULFAMETHOXAZOLE AND TRIMETHOPRIM [Concomitant]
     Dosage: 2 DF = 2TABS
     Route: 048
  9. LEVOFLOXACIN [Concomitant]
     Dosage: FORM TABS;LEVOFLOXACIN HYDRATE
     Route: 048
  10. ANTIBIOTICS [Concomitant]
     Dosage: ANTIBIOTICS-RESISTANT LACTIC ACID BACTERIAE
     Route: 048
  11. FLUCONAZOLE [Concomitant]
     Dosage: FORM CAPS
     Route: 048
  12. MAGNESIUM OXIDE [Concomitant]
     Dosage: FORM TABS
     Route: 048

REACTIONS (5)
  - ANAEMIA [None]
  - NEUTROPHIL COUNT DECREASED [None]
  - PLATELET COUNT DECREASED [None]
  - PLEURAL EFFUSION [None]
  - WHITE BLOOD CELL COUNT DECREASED [None]
